FAERS Safety Report 25723848 (Version 1)
Quarter: 2025Q3

REPORT INFORMATION
  Report Type: Spontaneous
  Country: US (occurrence: US)
  Receive Date: 20250825
  Receipt Date: 20250825
  Transmission Date: 20251021
  Serious: Yes (Disabling, Other)
  Sender: ALEXION PHARMACEUTICALS
  Company Number: US-AstraZeneca-CH-00802943AP

PATIENT
  Age: 79 Year
  Sex: Female

DRUGS (1)
  1. SYMBICORT [Suspect]
     Active Substance: BUDESONIDE\FORMOTEROL FUMARATE DIHYDRATE
     Route: 065

REACTIONS (7)
  - Product dose omission issue [Unknown]
  - Movement disorder [Unknown]
  - Product packaging quantity issue [Unknown]
  - Gait disturbance [Unknown]
  - Product dose omission issue [Unknown]
  - Mobility decreased [Unknown]
  - Dyspnoea [Unknown]

NARRATIVE: CASE EVENT DATE: 20250207
